FAERS Safety Report 15253776 (Version 1)
Quarter: 2018Q3

REPORT INFORMATION
  Report Type: Spontaneous
  Country: US (occurrence: US)
  Receive Date: 20180808
  Receipt Date: 20180808
  Transmission Date: 20181010
  Serious: Yes (Other)
  Sender: FDA-Public Use
  Company Number: US-DRREDDYS-USA/USA/18/0102934

PATIENT
  Sex: Female
  Weight: 61.23 kg

DRUGS (2)
  1. CIPROFLOXACIN. [Suspect]
     Active Substance: CIPROFLOXACIN
     Indication: PRODUCT USED FOR UNKNOWN INDICATION
     Route: 065
  2. ADDERALL [Concomitant]
     Active Substance: AMPHETAMINE ASPARTATE\AMPHETAMINE SULFATE\DEXTROAMPHETAMINE SACCHARATE\DEXTROAMPHETAMINE SULFATE
     Indication: ATTENTION DEFICIT/HYPERACTIVITY DISORDER

REACTIONS (10)
  - Insomnia [Unknown]
  - Product quality issue [Unknown]
  - Myalgia [Unknown]
  - Paraesthesia [Unknown]
  - Pain in extremity [Unknown]
  - Gait inability [Unknown]
  - Gait disturbance [Unknown]
  - Tendon pain [Unknown]
  - Arthralgia [Unknown]
  - Fatigue [Unknown]
